FAERS Safety Report 5329964-9 (Version None)
Quarter: 2007Q2

REPORT INFORMATION
  Report Type: 
  Country: None (occurrence: None)
  Receive Date: 20070521
  Receipt Date: 20070515
  Transmission Date: 20071010
  Serious: Yes (Other)
  Sender: FDA-Public Use
  Company Number: CA-ASTRAZENECA-2007UW12189

PATIENT
  Age: 27159 Day
  Sex: Female
  Weight: 79 kg

DRUGS (4)
  1. CRESTOR [Suspect]
     Indication: DYSLIPIDAEMIA
     Route: 048
     Dates: start: 20061220, end: 20070311
  2. TIAZAC [Concomitant]
     Indication: HYPERTENSION
     Route: 048
     Dates: start: 19950101
  3. LOPRESSOR [Concomitant]
     Indication: STOMACH DISCOMFORT
     Route: 048
     Dates: start: 20060101
  4. METFORMIN HCL [Concomitant]
     Indication: DIABETES MELLITUS
     Route: 048
     Dates: start: 20060101

REACTIONS (2)
  - GAIT DISTURBANCE [None]
  - PAIN [None]
